FAERS Safety Report 19954140 (Version 1)
Quarter: 2021Q4

REPORT INFORMATION
  Report Type: Spontaneous
  Country: US (occurrence: US)
  Receive Date: 20211013
  Receipt Date: 20211013
  Transmission Date: 20220303
  Serious: No
  Sender: FDA-Public Use
  Company Number: US-NEXGEN PHARMA, INC.-2120517

PATIENT
  Age: 24 Year
  Sex: Male

DRUGS (1)
  1. CHENODAL [Suspect]
     Active Substance: CHENODIOL
     Indication: Lipid metabolism disorder
     Route: 048
     Dates: start: 20210203

REACTIONS (8)
  - Headache [Unknown]
  - Insomnia [Unknown]
  - Hot flush [Unknown]
  - Chest pain [Unknown]
  - Abdominal pain upper [Unknown]
  - Muscle spasms [Unknown]
  - Hypoaesthesia [Unknown]
  - Chromaturia [Unknown]
